FAERS Safety Report 10636055 (Version 2)
Quarter: 2015Q1

REPORT INFORMATION
  Report Type: Spontaneous
  Country: US (occurrence: US)
  Receive Date: 20141205
  Receipt Date: 20150210
  Transmission Date: 20150720
  Serious: Yes (Death, Other)
  Sender: FDA-Public Use
  Company Number: US-BAYER-2014-177658

PATIENT
  Age: 31 Year
  Sex: Male
  Weight: 89 kg

DRUGS (1)
  1. ALKA-SELTZER PLUS COLD FORMULA [Suspect]
     Active Substance: ASPIRIN\CHLORPHENIRAMINE MALEATE\PHENYLEPHRINE BITARTRATE
     Indication: NASOPHARYNGITIS
     Dosage: 2 DF, PRN
     Route: 048
     Dates: end: 1974

REACTIONS (2)
  - Aneurysm [Fatal]
  - Cardiac disorder [Recovered/Resolved]

NARRATIVE: CASE EVENT DATE: 19740121
